FAERS Safety Report 8074573-4 (Version None)
Quarter: 2012Q1

REPORT INFORMATION
  Report Type: 
  Country: None (occurrence: None)
  Receive Date: 20120126
  Receipt Date: 20120122
  Transmission Date: 20120608
  Serious: Yes (Other)
  Sender: FDA-Public Use
  Company Number: US-PFIZER INC-2012017473

PATIENT
  Sex: Male
  Weight: 43.537 kg

DRUGS (1)
  1. VIAGRA [Suspect]
     Indication: ERECTILE DYSFUNCTION
     Dosage: 100 MG, AS NEEDED
     Dates: start: 20120102

REACTIONS (4)
  - TESTICULAR DISORDER [None]
  - HAEMORRHAGE [None]
  - PURULENT DISCHARGE [None]
  - PENIS DISORDER [None]
